FAERS Safety Report 5979915-9 (Version None)
Quarter: 2008Q4

REPORT INFORMATION
  Report Type: 
  Country: None (occurrence: None)
  Receive Date: 20081126
  Receipt Date: 20081110
  Transmission Date: 20090506
  Serious: Yes (Hospitalization)
  Sender: FDA-Public Use
  Company Number: DSA_32672_2008

PATIENT
  Sex: Female

DRUGS (10)
  1. LORAZEPAM [Suspect]
     Indication: SCHIZOPHRENIA
     Dosage: 2.5 MG QD ORAL; A FEW MONTHS UNTIL CONTINUING
     Route: 048
  2. HALDOL [Suspect]
     Indication: SCHIZOPHRENIA
     Dosage: 15 MG QD ORAL
     Route: 048
     Dates: start: 20080208
  3. CLOZAPINE [Suspect]
     Indication: SCHIZOPHRENIA
     Dosage: 600 MG QD ORAL; A FEW YEARS UNTIL CONTINUING
     Route: 048
  4. MIRTAZAPINE [Suspect]
     Indication: SCHIZOPHRENIA
     Dosage: 15 MG QD ORAL, 30 MG QD, 45 MG QD, 60 MG QD
     Route: 048
     Dates: start: 20071001, end: 20071001
  5. MIRTAZAPINE [Suspect]
     Indication: SCHIZOPHRENIA
     Dosage: 15 MG QD ORAL, 30 MG QD, 45 MG QD, 60 MG QD
     Route: 048
     Dates: start: 20071002, end: 20071007
  6. MIRTAZAPINE [Suspect]
     Indication: SCHIZOPHRENIA
     Dosage: 15 MG QD ORAL, 30 MG QD, 45 MG QD, 60 MG QD
     Route: 048
     Dates: start: 20071008, end: 20071209
  7. MIRTAZAPINE [Suspect]
     Indication: SCHIZOPHRENIA
     Dosage: 15 MG QD ORAL, 30 MG QD, 45 MG QD, 60 MG QD
     Route: 048
     Dates: start: 20071210, end: 20080129
  8. MIRTAZAPINE [Suspect]
     Indication: SCHIZOPHRENIA
     Dosage: 15 MG QD ORAL, 30 MG QD, 45 MG QD, 60 MG QD
     Route: 048
     Dates: start: 20080130, end: 20080218
  9. MIRTAZAPINE [Suspect]
     Indication: SCHIZOPHRENIA
     Dosage: 15 MG QD ORAL, 30 MG QD, 45 MG QD, 60 MG QD
     Route: 048
     Dates: start: 20080219, end: 20080220
  10. MIRTAZAPINE [Suspect]
     Indication: SCHIZOPHRENIA
     Dosage: 15 MG QD ORAL, 30 MG QD, 45 MG QD, 60 MG QD
     Route: 048
     Dates: start: 20080221, end: 20080221

REACTIONS (4)
  - ALANINE AMINOTRANSFERASE INCREASED [None]
  - ASPARTATE AMINOTRANSFERASE INCREASED [None]
  - GAMMA-GLUTAMYLTRANSFERASE INCREASED [None]
  - HEPATIC STEATOSIS [None]
